FAERS Safety Report 18786643 (Version 2)
Quarter: 2021Q1

REPORT INFORMATION
  Report Type: Spontaneous
  Country: US (occurrence: US)
  Receive Date: 20210125
  Receipt Date: 20210127
  Transmission Date: 20210419
  Serious: No
  Sender: FDA-Public Use
  Company Number: US-PFIZER INC-2021041406

PATIENT
  Sex: Female

DRUGS (4)
  1. BACTERIOSTATIC SODIUM CHLORIDE [Suspect]
     Active Substance: SODIUM CHLORIDE
     Dosage: UNK
  2. GABAPENTIN. [Suspect]
     Active Substance: GABAPENTIN
     Dosage: UNK
  3. IODINE. [Suspect]
     Active Substance: IODINE
     Dosage: UNK
  4. LITHIUM. [Suspect]
     Active Substance: LITHIUM
     Dosage: UNK

REACTIONS (1)
  - Drug hypersensitivity [Unknown]
